FAERS Safety Report 5010762-0 (Version None)
Quarter: 2006Q2

REPORT INFORMATION
  Report Type: 
  Country: None (occurrence: None)
  Receive Date: 20060525
  Receipt Date: 20050829
  Transmission Date: 20061013
  Serious: Yes (Other)
  Sender: FDA-Public Use
  Company Number: CA-ROCHE-416006

PATIENT
  Age: 39 Year
  Sex: Male

DRUGS (6)
  1. FUZEON [Suspect]
     Dosage: BIOJECTOR.
     Route: 058
     Dates: start: 20050715
  2. COMBIVIR [Concomitant]
     Route: 048
  3. NORVIR [Concomitant]
     Route: 048
     Dates: start: 20050820
  4. ZITHROMAX [Concomitant]
     Route: 048
  5. TIPRANAVIR [Concomitant]
     Dosage: DRUG NAME REPORTED AS TRIPANAVIR.
     Route: 048
  6. VIDEX [Concomitant]
     Dosage: DOSAGE REGIMEN REPORTED AS ONE PILL BEFORE EATING.

REACTIONS (8)
  - ABDOMINAL RIGIDITY [None]
  - ANOREXIA [None]
  - ERUCTATION [None]
  - FATIGUE [None]
  - FEELING HOT [None]
  - HEADACHE [None]
  - INJECTION SITE MASS [None]
  - INJECTION SITE REACTION [None]
